FAERS Safety Report 9970248 (Version 1)
Quarter: 2014Q1

REPORT INFORMATION
  Report Type: Spontaneous
  Country: US (occurrence: US)
  Receive Date: 20140306
  Receipt Date: 20140306
  Transmission Date: 20141002
  Serious: No
  Sender: FDA-Public Use
  Company Number: US-BAYER-2014-034337

PATIENT
  Age: 14 Year
  Sex: Female
  Weight: 65.76 kg

DRUGS (1)
  1. ALEVE CAPLET [Suspect]
     Dosage: 2 DF, UNK
     Route: 048

REACTIONS (2)
  - Pruritus [Not Recovered/Not Resolved]
  - Chest discomfort [Not Recovered/Not Resolved]
